FAERS Safety Report 21168721 (Version 2)
Quarter: 2022Q3

REPORT INFORMATION
  Report Type: Spontaneous
  Country: US (occurrence: US)
  Receive Date: 20220803
  Receipt Date: 20220819
  Transmission Date: 20221026
  Serious: Yes (Other)
  Sender: FDA-Public Use
  Company Number: US-BAYER-2022A105657

PATIENT
  Age: 25 Year
  Sex: Male

DRUGS (3)
  1. KOVALTRY [Suspect]
     Active Substance: ANTIHEMOPHILIC FACTOR, HUMAN RECOMBINANT
     Dosage: INFUSE 4700 UNITS (+/- 10%) 3X A WEEK
  2. KOVALTRY [Suspect]
     Active Substance: ANTIHEMOPHILIC FACTOR, HUMAN RECOMBINANT
     Dosage: INFUSE 4700 UNITS (+/- 10%) PRN FOR ACUTE BLEEDS
  3. KOVALTRY [Suspect]
     Active Substance: ANTIHEMOPHILIC FACTOR, HUMAN RECOMBINANT
     Dosage: UNK; DAILY FOR TREATMENT OF FRACTURED RIGHT CLAVICLE

REACTIONS (1)
  - Clavicle fracture [None]

NARRATIVE: CASE EVENT DATE: 20220724
